FAERS Safety Report 24772021 (Version 2)
Quarter: 2025Q2

REPORT INFORMATION
  Report Type: Spontaneous
  Country: US (occurrence: US)
  Receive Date: 20241224
  Receipt Date: 20250409
  Transmission Date: 20250717
  Serious: Yes (Hospitalization)
  Sender: SANOFI AVENTIS
  Company Number: US-SA-2024SA378500

PATIENT
  Sex: Male
  Weight: 26 kg

DRUGS (1)
  1. DUPIXENT [Suspect]
     Active Substance: DUPILUMAB
     Indication: Dermatitis atopic
     Dosage: 300 MG, Q4W
     Route: 058

REACTIONS (5)
  - Hospitalisation [Unknown]
  - Dry skin [Unknown]
  - Nasopharyngitis [Recovered/Resolved]
  - Pruritus [Unknown]
  - Dermatitis atopic [Recovered/Resolved]
